FAERS Safety Report 25841247 (Version 1)
Quarter: 2025Q3

REPORT INFORMATION
  Report Type: Other
  Country: US (occurrence: US)
  Receive Date: 20250924
  Receipt Date: 20250924
  Transmission Date: 20251021
  Serious: Yes (Hospitalization, Other)
  Sender: ANI
  Company Number: 2024-US-042838

PATIENT
  Sex: Female

DRUGS (3)
  1. FLECAINIDE [Suspect]
     Active Substance: FLECAINIDE
     Indication: Andersen-Tawil syndrome
  2. MEXILETINE [Suspect]
     Active Substance: MEXILETINE
     Indication: Andersen-Tawil syndrome
  3. FLECAINIDE [Suspect]
     Active Substance: FLECAINIDE
     Indication: Cardiomyopathy

REACTIONS (2)
  - Arrhythmic storm [Recovered/Resolved]
  - Drug ineffective [Unknown]
